FAERS Safety Report 7658386-0 (Version None)
Quarter: 2011Q3

REPORT INFORMATION
  Report Type: 
  Country: None (occurrence: None)
  Receive Date: 20110802
  Receipt Date: 20110719
  Transmission Date: 20111222
  Serious: Yes (Life-Threatening, Hospitalization)
  Sender: FDA-Public Use
  Company Number: TCI2011A03616

PATIENT

DRUGS (4)
  1. ZOSYN [Suspect]
     Indication: PNEUMONIA
     Dosage: 18 GM (4.5 GM,L IN 6 HR)  INTRAVENOUS DRIP
     Route: 041
     Dates: start: 20110430, end: 20110510
  2. COTRIM [Suspect]
     Indication: PNEUMONIA
     Dosage: 4 TAB. (2 TAB. ,L IN 12 HR) NASOGASTRIC TUBE
     Dates: start: 20110511, end: 20110517
  3. PASIL (PAZUFLOXACIN) [Suspect]
     Indication: PNEUMONIA
     Dosage: 1 GM (0.5 GM,1 IN 12 HR)  INTRAVENOUS DRIP
     Route: 041
     Dates: start: 20110510, end: 20110517
  4. ACTOS [Suspect]
     Indication: DIABETES MELLITUS
     Dosage: 30 MG (30 MG,1 IN 1 D) PER ORAL
     Route: 048
     Dates: start: 20101229, end: 20110429

REACTIONS (27)
  - PNEUMONIA [None]
  - ATELECTASIS [None]
  - DISUSE SYNDROME [None]
  - BACTERIAL TEST POSITIVE [None]
  - HAEMODIALYSIS [None]
  - RENAL DISORDER [None]
  - HEPATIC NECROSIS [None]
  - LEPTOSPIROSIS [None]
  - PANCREATITIS ACUTE [None]
  - ACUTE RESPIRATORY FAILURE [None]
  - GENERALISED OEDEMA [None]
  - CHOLELITHIASIS [None]
  - LYMPHOCYTE STIMULATION TEST POSITIVE [None]
  - LIVER DISORDER [None]
  - HEPATITIS [None]
  - INFLUENZA [None]
  - HYPOVOLAEMIA [None]
  - ELECTROCARDIOGRAM T WAVE PEAKED [None]
  - VOCAL CORD POLYP [None]
  - WHEELCHAIR USER [None]
  - RENAL TUBULAR DISORDER [None]
  - BLOOD PRESSURE DECREASED [None]
  - CHOLESTASIS [None]
  - RENAL FAILURE ACUTE [None]
  - FLANK PAIN [None]
  - BRADYCARDIA [None]
  - DIARRHOEA [None]
